FAERS Safety Report 21314725 (Version 1)
Quarter: 2022Q3

REPORT INFORMATION
  Report Type: Spontaneous
  Country: US (occurrence: None)
  Receive Date: 20220909
  Receipt Date: 20220909
  Transmission Date: 20221027
  Serious: No
  Sender: FDA-Public Use
  Company Number: US-ARIS GLOBAL-202111-1971

PATIENT
  Sex: Male
  Weight: 111.82 kg

DRUGS (14)
  1. OXERVATE [Suspect]
     Active Substance: CENEGERMIN-BKBJ
     Indication: Neurotrophic keratopathy
     Route: 047
     Dates: start: 20210224, end: 20210421
  2. OXERVATE [Suspect]
     Active Substance: CENEGERMIN-BKBJ
     Indication: Hypoaesthesia eye
     Route: 047
     Dates: start: 20211105, end: 20211112
  3. OXERVATE [Suspect]
     Active Substance: CENEGERMIN-BKBJ
     Indication: Ulcerative keratitis
  4. DOXYCYCLINE HYCLATE [Concomitant]
     Active Substance: DOXYCYCLINE HYCLATE
  5. GABAPENTIN [Concomitant]
     Active Substance: GABAPENTIN
  6. VALACYCLOVIR [Concomitant]
     Active Substance: VALACYCLOVIR HYDROCHLORIDE
  7. ACETAMINOPHEN\HYDROCODONE [Concomitant]
     Active Substance: ACETAMINOPHEN\HYDROCODONE
  8. LISINOPRIL AND HYDROCHLOROTHIAZIDE [Concomitant]
     Active Substance: HYDROCHLOROTHIAZIDE\LISINOPRIL
  9. AMLODIPINE BESYLATE-BENAZEPRIL [Concomitant]
  10. PREDNISOLONE-NEPAFENAC [Concomitant]
  11. NEURONTIN [Concomitant]
     Active Substance: GABAPENTIN
     Indication: Herpes zoster
  12. VALTREX [Concomitant]
     Active Substance: VALACYCLOVIR HYDROCHLORIDE
     Indication: Herpes zoster
  13. TIMOLOL [Concomitant]
     Active Substance: TIMOLOL
  14. COSOPT [Concomitant]
     Active Substance: DORZOLAMIDE HYDROCHLORIDE\TIMOLOL MALEATE

REACTIONS (9)
  - Eye haemorrhage [Recovered/Resolved]
  - Drug ineffective [Recovered/Resolved]
  - Eye pain [Not Recovered/Not Resolved]
  - Ocular hyperaemia [Recovered/Resolved]
  - Eye inflammation [Recovered/Resolved]
  - Eye irritation [Recovered/Resolved]
  - Vision blurred [Not Recovered/Not Resolved]
  - Headache [Not Recovered/Not Resolved]
  - Blood urine present [Unknown]
